FAERS Safety Report 7116163-3 (Version None)
Quarter: 2010Q4

REPORT INFORMATION
  Report Type: 
  Country: None (occurrence: None)
  Receive Date: 20101122
  Receipt Date: 20101110
  Transmission Date: 20110411
  Serious: Yes (Hospitalization, Other)
  Sender: FDA-Public Use
  Company Number: PHFR2010GB04459

PATIENT
  Sex: Female
  Weight: 63.5 kg

DRUGS (3)
  1. OCTREOTIDE ACETATE [Suspect]
     Indication: DIARRHOEA
     Dosage: 500 MCG
     Dates: start: 20100714
  2. OCTREOTIDE ACETATE [Suspect]
     Dosage: 1000 MCG
  3. FENTANYL [Concomitant]
     Dosage: 50 UG, UNK
     Dates: start: 20100601

REACTIONS (2)
  - ABDOMINAL PAIN [None]
  - GENERAL PHYSICAL HEALTH DETERIORATION [None]
